FAERS Safety Report 9731252 (Version 9)
Quarter: 2014Q4

REPORT INFORMATION
  Report Type: Spontaneous
  Country: US (occurrence: US)
  Receive Date: 20131205
  Receipt Date: 20141013
  Transmission Date: 20150529
  Serious: Yes (Hospitalization, Other)
  Sender: FDA-Public Use
  Company Number: US-BEH-2013035076

PATIENT
  Age: 49 Year
  Sex: Female
  Weight: 81 kg

DRUGS (28)
  1. EPIPEN [Concomitant]
     Active Substance: EPINEPHRINE
  2. PROTONIX [Concomitant]
     Active Substance: PANTOPRAZOLE SODIUM
  3. ZANAFLEX [Concomitant]
     Active Substance: TIZANIDINE HYDROCHLORIDE
  4. CORTISONE [Concomitant]
     Active Substance: CORTISONE\HYDROCORTISONE
     Indication: PREMEDICATION
  5. HIZENTRA [Suspect]
     Active Substance: HUMAN IMMUNOGLOBULIN G
     Dosage: 4 GM 20 ML VIAL; 4 SITES OVER 5.5-6 HOURS
     Route: 058
  6. OMNARIS [Concomitant]
     Active Substance: CICLESONIDE
  7. BENADRYL ALLERGY [Concomitant]
     Active Substance: DIPHENHYDRAMINE HYDROCHLORIDE
     Route: 048
  8. LMX [Concomitant]
     Active Substance: LIDOCAINE
     Indication: PREMEDICATION
  9. XANAX [Concomitant]
     Active Substance: ALPRAZOLAM
  10. PLAQUENIL [Concomitant]
     Active Substance: HYDROXYCHLOROQUINE SULFATE
  11. HIZENTRA [Suspect]
     Active Substance: HUMAN IMMUNOGLOBULIN G
     Indication: IMMUNODEFICIENCY COMMON VARIABLE
     Dosage: 2 GM 10 ML VIAL;INFUSE 1-2 HOURS
     Route: 058
  12. HIZENTRA [Suspect]
     Active Substance: HUMAN IMMUNOGLOBULIN G
     Dosage: 2 GM 10 ML VIAL; 4 SITES OVER 5.5-6 HOURS
     Route: 058
  13. HIZENTRA [Suspect]
     Active Substance: HUMAN IMMUNOGLOBULIN G
  14. AVELOX [Concomitant]
     Active Substance: MOXIFLOXACIN HYDROCHLORIDE
  15. MIL OF MAGNESIA [Concomitant]
  16. HIZENTRA [Suspect]
     Active Substance: HUMAN IMMUNOGLOBULIN G
  17. DIPHENHYDRAMINE [Concomitant]
     Active Substance: DIPHENHYDRAMINE
     Indication: PREMEDICATION
  18. SINGULAIR [Concomitant]
     Active Substance: MONTELUKAST SODIUM
  19. FENTANYL. [Concomitant]
     Active Substance: FENTANYL
  20. HIZENTRA [Suspect]
     Active Substance: HUMAN IMMUNOGLOBULIN G
     Dosage: TAKING HIZENTRA FOR PAST 2 YEARS
     Route: 058
  21. XYZAL [Concomitant]
     Active Substance: LEVOCETIRIZINE DIHYDROCHLORIDE
  22. HIZENTRA [Suspect]
     Active Substance: HUMAN IMMUNOGLOBULIN G
     Dosage: 4 GM 20 ML VIAL; INFUSE 1-2 HOURS
     Route: 058
  23. LIDOCAINE. [Concomitant]
     Active Substance: LIDOCAINE
     Indication: PREMEDICATION
  24. HIZENTRA [Suspect]
     Active Substance: HUMAN IMMUNOGLOBULIN G
  25. HIZENTRA [Suspect]
     Active Substance: HUMAN IMMUNOGLOBULIN G
  26. POTASSIUM CL [Concomitant]
     Active Substance: POTASSIUM CHLORIDE
  27. OMEGA 3 FISH OIL [Concomitant]
     Active Substance: FISH OIL\OMEGA-3 FATTY ACIDS
  28. NORCO [Concomitant]
     Active Substance: ACETAMINOPHEN\HYDROCODONE BITARTRATE

REACTIONS (22)
  - Pneumonia [Unknown]
  - Procedural complication [Recovered/Resolved]
  - Weight decreased [Recovered/Resolved]
  - Muscle spasms [Unknown]
  - Burning sensation [Unknown]
  - Renal pain [Unknown]
  - Infusion site swelling [Recovering/Resolving]
  - Blood urine present [Recovered/Resolved]
  - Infusion site pain [Recovered/Resolved]
  - Abdominal pain [Recovered/Resolved]
  - External ear pain [Unknown]
  - Dyspnoea [Unknown]
  - Muscle spasms [Recovered/Resolved]
  - Myalgia [Unknown]
  - Incorrect drug administration rate [Unknown]
  - Diarrhoea [Unknown]
  - Infusion site urticaria [Recovered/Resolved]
  - Sinusitis [Unknown]
  - Muscle spasms [Unknown]
  - Urinary tract infection [Recovered/Resolved]
  - Vomiting [Unknown]
  - Pyrexia [Unknown]

NARRATIVE: CASE EVENT DATE: 2013
